FAERS Safety Report 17691647 (Version 1)
Quarter: 2020Q2

REPORT INFORMATION
  Report Type: Spontaneous
  Country: US (occurrence: US)
  Receive Date: 20200422
  Receipt Date: 20200422
  Transmission Date: 20200714
  Serious: No
  Sender: FDA-Public Use
  Company Number: US-ALLERGAN-1923801US

PATIENT
  Sex: Female
  Weight: 40.82 kg

DRUGS (1)
  1. ATELVIA [Suspect]
     Active Substance: RISEDRONATE SODIUM
     Indication: OSTEOPOROSIS
     Dosage: 35 MG, Q WEEK
     Route: 048
     Dates: start: 201903, end: 201904

REACTIONS (1)
  - Blood parathyroid hormone increased [Recovered/Resolved]
